FAERS Safety Report 12502490 (Version 1)
Quarter: 2016Q2

REPORT INFORMATION
  Report Type: Other
  Country: None (occurrence: US)
  Receive Date: 20160627
  Receipt Date: 20160627
  Transmission Date: 20160815
  Serious: Yes (Life-Threatening, Hospitalization)
  Sender: FDA-Public Use
  Company Number: US-GUTHY-RENKER LLC-1054360

PATIENT
  Sex: Female

DRUGS (1)
  1. MEANINGFUL BEAUTY CINDY CRAWFORD ANTIOXIDANT SPF 20 UVA/UVB [Suspect]
     Active Substance: AVOBENZONE\OCTINOXATE\OCTISALATE\OXYBENZONE
     Indication: PHOTOSENSITIVITY REACTION
     Route: 061
     Dates: start: 20160508

REACTIONS (6)
  - Erythema [None]
  - Dyspnoea [None]
  - Throat tightness [Recovered/Resolved]
  - Swelling face [None]
  - Application site vesicles [None]
  - Eye disorder [None]

NARRATIVE: CASE EVENT DATE: 20160508
